FAERS Safety Report 10437161 (Version 1)
Quarter: 2014Q3

REPORT INFORMATION
  Report Type: Spontaneous
  Country: US (occurrence: US)
  Receive Date: 20140908
  Receipt Date: 20140908
  Transmission Date: 20150326
  Serious: Yes (Other)
  Sender: FDA-Public Use
  Company Number: US-BRISTOL-MYERS SQUIBB COMPANY-20338398

PATIENT
  Sex: Female

DRUGS (10)
  1. ABILIFY [Suspect]
     Active Substance: ARIPIPRAZOLE
     Indication: ANXIETY
     Route: 048
     Dates: start: 2008, end: 2013
  2. CLONAZEPAM. [Concomitant]
     Active Substance: CLONAZEPAM
  3. LOXAPINE SUCCINATE. [Concomitant]
     Active Substance: LOXAPINE SUCCINATE
  4. ABILIFY [Suspect]
     Active Substance: ARIPIPRAZOLE
     Indication: DEPRESSION
     Route: 048
     Dates: start: 2008, end: 2013
  5. TRAZODONE HYDROCHLORIDE. [Concomitant]
     Active Substance: TRAZODONE HYDROCHLORIDE
  6. ABILIFY [Suspect]
     Active Substance: ARIPIPRAZOLE
     Indication: BIPOLAR DISORDER
     Route: 048
     Dates: start: 2008, end: 2013
  7. BUPROPION [Concomitant]
     Active Substance: BUPROPION
  8. BENZTROPINE [Concomitant]
     Active Substance: BENZTROPINE
  9. VENLAFAXINE HCL [Concomitant]
     Active Substance: VENLAFAXINE HYDROCHLORIDE
  10. ABILIFY [Suspect]
     Active Substance: ARIPIPRAZOLE
     Indication: SCHIZOPHRENIA
     Route: 048
     Dates: start: 2008, end: 2013

REACTIONS (3)
  - Suicidal ideation [Not Recovered/Not Resolved]
  - Convulsion [Not Recovered/Not Resolved]
  - Hallucination [Unknown]
